FAERS Safety Report 20210465 (Version 1)
Quarter: 2021Q4

REPORT INFORMATION
  Report Type: Report from Study
  Country: IT (occurrence: IT)
  Receive Date: 20211221
  Receipt Date: 20211221
  Transmission Date: 20220303
  Serious: Yes (Other)
  Sender: FDA-Public Use
  Company Number: None

PATIENT
  Age: 58 Year
  Sex: Female
  Weight: 53 kg

DRUGS (5)
  1. FLUOROURACIL [Suspect]
     Active Substance: FLUOROURACIL
     Indication: Rectal cancer
     Dosage: 900 MG
     Route: 042
     Dates: start: 20210215, end: 20211130
  2. PANITUMUMAB [Suspect]
     Active Substance: PANITUMUMAB
     Indication: Rectal cancer
     Dosage: 200 MG
     Route: 042
     Dates: start: 20210215, end: 20211130
  3. DOMPERIDONE [Concomitant]
     Active Substance: DOMPERIDONE
     Dosage: 10 MG
     Route: 048
  4. CHOLECALCIFEROL [Concomitant]
     Active Substance: CHOLECALCIFEROL
     Dosage: 25000 MG, DIBASE 25.000 I.U./2.5 ML ORAL SOLUTION
     Route: 048
  5. OMEPRAZOLE [Concomitant]
     Active Substance: OMEPRAZOLE
     Dosage: 40 MG
     Route: 048
     Dates: start: 20210215, end: 20211130

REACTIONS (2)
  - Paraesthesia [Unknown]
  - Paraesthesia [Unknown]

NARRATIVE: CASE EVENT DATE: 20211130
